FAERS Safety Report 5441311-0 (Version None)
Quarter: 2007Q3

REPORT INFORMATION
  Report Type: 
  Country: None (occurrence: None)
  Receive Date: 20070903
  Receipt Date: 20070823
  Transmission Date: 20080115
  Serious: Yes (Other)
  Sender: FDA-Public Use
  Company Number: PHFR2007GB02529

PATIENT
  Age: 84 Year
  Sex: Male

DRUGS (7)
  1. FAMCICLOVIR [Suspect]
     Indication: HERPES ZOSTER
     Dosage: 750 MG/DAY
     Route: 048
     Dates: start: 20070731, end: 20070731
  2. AZATHIOPRINE [Concomitant]
     Indication: PSORIASIS
     Dosage: 25 MG, QD
     Route: 048
  3. CANDESARTAN CILEXETIL [Concomitant]
     Indication: HYPERTENSION
     Dosage: 16 MG, QD
     Route: 048
  4. OMEPRAZOLE [Concomitant]
     Indication: HIATUS HERNIA
     Route: 048
  5. SIMVASTATIN [Concomitant]
     Indication: HYPERTENSION
     Dosage: 20 MG, QD
     Route: 048
  6. ADIZEM [Concomitant]
     Indication: HYPERTENSION
     Dosage: 120 MG, QD
     Route: 048
  7. ASPIRIN [Concomitant]
     Indication: HYPERTENSION
     Dosage: 75 MG, BID
     Route: 048

REACTIONS (4)
  - BALANCE DISORDER [None]
  - CONFUSIONAL STATE [None]
  - CONVULSION [None]
  - TREMOR [None]
